FAERS Safety Report 25399510 (Version 5)
Quarter: 2025Q2

REPORT INFORMATION
  Report Type: Report from Study
  Country: US (occurrence: US)
  Receive Date: 20250605
  Receipt Date: 20250626
  Transmission Date: 20250717
  Serious: Yes (Hospitalization)
  Sender: JOHNSON AND JOHNSON
  Company Number: US-JNJFOC-20250531636

PATIENT
  Age: 21 Year
  Sex: Female
  Weight: 62.142 kg

DRUGS (6)
  1. VELETRI [Suspect]
     Active Substance: EPOPROSTENOL
     Indication: Pulmonary hypertension
     Route: 042
  2. VELETRI [Suspect]
     Active Substance: EPOPROSTENOL
     Route: 042
  3. VELETRI [Suspect]
     Active Substance: EPOPROSTENOL
     Dosage: EXPIRY DATE FOR MX057P1: 31-MAY-2026
     Route: 042
  4. SILDENAFIL CITRATE [Concomitant]
     Active Substance: SILDENAFIL CITRATE
     Indication: Product used for unknown indication
  5. AMBRISENTAN [Concomitant]
     Active Substance: AMBRISENTAN
     Indication: Product used for unknown indication
  6. OPSUMIT [Concomitant]
     Active Substance: MACITENTAN
     Indication: Product used for unknown indication

REACTIONS (10)
  - Hospitalisation [Unknown]
  - Nausea [Unknown]
  - Vomiting [Unknown]
  - Catheter site rash [Unknown]
  - Headache [Unknown]
  - Skin infection [Unknown]
  - Dermatitis contact [Unknown]
  - Malaise [Unknown]
  - Blister [Unknown]
  - Flushing [Unknown]

NARRATIVE: CASE EVENT DATE: 20250512
